FAERS Safety Report 16241862 (Version 1)
Quarter: 2019Q2

REPORT INFORMATION
  Report Type: Spontaneous
  Country: US (occurrence: US)
  Receive Date: 20190426
  Receipt Date: 20190426
  Transmission Date: 20190711
  Serious: No
  Sender: FDA-Public Use
  Company Number: US-009507513-1904USA009336

PATIENT
  Age: 47 Year
  Sex: Male
  Weight: 85.7 kg

DRUGS (6)
  1. TELAVANCIN HYDROCHLORIDE [Concomitant]
     Active Substance: TELAVANCIN HYDROCHLORIDE
     Indication: STAPHYLOCOCCAL INFECTION
     Dosage: 7.5 MILLIGRAM, Q24H
     Route: 042
  2. TELAVANCIN HYDROCHLORIDE [Concomitant]
     Active Substance: TELAVANCIN HYDROCHLORIDE
     Indication: BACTERAEMIA
  3. CUBICIN [Suspect]
     Active Substance: DAPTOMYCIN
     Indication: ANTIBIOTIC THERAPY
  4. CUBICIN [Suspect]
     Active Substance: DAPTOMYCIN
     Indication: PNEUMONIA KLEBSIELLA
  5. CIPROFLOXACIN. [Concomitant]
     Active Substance: CIPROFLOXACIN
     Indication: ANTIBIOTIC THERAPY
  6. CIPROFLOXACIN. [Concomitant]
     Active Substance: CIPROFLOXACIN
     Indication: PNEUMONIA KLEBSIELLA

REACTIONS (1)
  - Product use in unapproved indication [Unknown]
